FAERS Safety Report 23348439 (Version 1)
Quarter: 2023Q4

REPORT INFORMATION
  Report Type: Report from Study
  Country: CH (occurrence: CH)
  Receive Date: 20231228
  Receipt Date: 20231228
  Transmission Date: 20240109
  Serious: Yes (Death)
  Sender: FDA-Public Use
  Company Number: CH-ABBVIE-5563209

PATIENT
  Age: 67 Year
  Sex: Female

DRUGS (7)
  1. CARBIDOPA\LEVODOPA [Suspect]
     Active Substance: CARBIDOPA\LEVODOPA
     Indication: Parkinson^s disease
     Dosage: MD: 5 ML, CRD: 2.7 ML/H, CRN: 0 ML/H, ED: 0.5 ML?FREQUENCY TEXT: 16H THERAPY
     Route: 050
     Dates: start: 20230621, end: 20230720
  2. CARBIDOPA\LEVODOPA [Suspect]
     Active Substance: CARBIDOPA\LEVODOPA
     Dosage: MD: 2.5 ML, CRD: 2 ML/H, CRN: 1 ML/H, ED: 0.5 ML?FREQUENCY TEXT: 24H THERAPY
     Route: 050
     Dates: start: 20230721, end: 20231225
  3. CARBIDOPA\LEVODOPA [Suspect]
     Active Substance: CARBIDOPA\LEVODOPA
     Route: 050
     Dates: start: 20220517
  4. CARBIDOPA\LEVODOPA [Suspect]
     Active Substance: CARBIDOPA\LEVODOPA
     Dosage: MD: 5 ML, CRD: 2.6 ML/H, CRN: 0 ML/H, ED: 0.5 ML?FREQUENCY TEXT: 16H THERAPY
     Route: 050
     Dates: start: 20230619, end: 20230621
  5. CARBIDOPA\LEVODOPA [Suspect]
     Active Substance: CARBIDOPA\LEVODOPA
     Dosage: MD: 2.5 ML, CRD: 2 ML/H, CRN: 1 ML/H, ED: 0.5 ML?FREQUENCY TEXT: 24H THERAPY
     Route: 050
     Dates: start: 20230720, end: 20230721
  6. CARBIDOPA\LEVODOPA [Suspect]
     Active Substance: CARBIDOPA\LEVODOPA
     Dosage: MD: 5 ML, CRD: 2.8 ML/H, CRN: 0 ML/H, ED: 0.5 ML?FREQUENCY TEXT: 16H THERAPY
     Route: 050
     Dates: start: 20230414, end: 20230614
  7. CARBIDOPA\LEVODOPA [Suspect]
     Active Substance: CARBIDOPA\LEVODOPA
     Dosage: MD: 5 ML, CRD: 2.7 ML/H, CRN: 0 ML/H, ED: 0.5 ML?FREQUENCY TEXT: 16H THERAPY
     Route: 050
     Dates: start: 20230614, end: 20230619

REACTIONS (1)
  - Death [Fatal]

NARRATIVE: CASE EVENT DATE: 20231225
